FAERS Safety Report 8237295-2 (Version None)
Quarter: 2012Q1

REPORT INFORMATION
  Report Type: 
  Country: None (occurrence: None)
  Receive Date: 20120327
  Receipt Date: 20120316
  Transmission Date: 20120608
  Serious: Yes (Hospitalization, Other)
  Sender: FDA-Public Use
  Company Number: US-BRISTOL-MYERS SQUIBB COMPANY-15890254

PATIENT
  Age: 68 Year
  Sex: Female
  Weight: 75 kg

DRUGS (3)
  1. CARBOPLATIN [Suspect]
     Indication: ENDOMETRIAL CANCER
     Dosage: LAST DOSE ON 10MAY2011
     Route: 042
     Dates: start: 20110322
  2. RHUMAB-VEGF [Suspect]
     Indication: ENDOMETRIAL CANCER
     Dosage: LAST DOSE ON 10MAY2011
     Route: 042
     Dates: start: 20110322
  3. IXEMPRA KIT [Suspect]
     Indication: ENDOMETRIAL CANCER
     Dosage: LAST DOSE ON 10MAY2011
     Route: 042
     Dates: start: 20110322

REACTIONS (3)
  - PLATELET COUNT DECREASED [None]
  - HYPOALBUMINAEMIA [None]
  - ANAEMIA [None]
